FAERS Safety Report 9207772 (Version 3)
Quarter: 2013Q2

REPORT INFORMATION
  Report Type: Spontaneous
  Country: QA (occurrence: QA)
  Receive Date: 20130403
  Receipt Date: 20130531
  Transmission Date: 20140414
  Serious: Yes (Hospitalization, Other)
  Sender: FDA-Public Use
  Company Number: QA-VERTEX PHARMACEUTICALS INC.-2013-003177

PATIENT
  Age: 46 Year
  Sex: Female

DRUGS (4)
  1. INCIVO [Suspect]
     Indication: HEPATITIS C
     Dosage: 750 MG, TID
     Route: 048
     Dates: start: 20130124, end: 20130307
  2. RIBAVIRIN [Suspect]
     Indication: HEPATITIS C
     Dosage: DOSAGE FORM: UNSPECIFIED, ^FULL DOSE^
     Route: 065
     Dates: start: 20130124, end: 20130221
  3. RIBAVIRIN [Suspect]
     Dosage: DOSAGE FORM: UNSPECIFIED, DOSE REDUCTION
     Route: 065
     Dates: start: 20130221, end: 20130307
  4. INTERFERON [Suspect]
     Indication: HEPATITIS C
     Dosage: DOSAGE FORM: UNSPECIFIED
     Route: 065
     Dates: start: 20130124, end: 20130307

REACTIONS (3)
  - Embolism [Recovered/Resolved]
  - Brain neoplasm malignant [Unknown]
  - Anaemia [Not Recovered/Not Resolved]
